APPROVED DRUG PRODUCT: ZOLEDRONIC ACID
Active Ingredient: ZOLEDRONIC ACID
Strength: EQ 5MG BASE/100ML
Dosage Form/Route: INJECTABLE;INTRAVENOUS
Application: A204367 | Product #001
Applicant: APOTEX INC
Approved: Dec 24, 2015 | RLD: No | RS: No | Type: DISCN